FAERS Safety Report 7971768-2 (Version None)
Quarter: 2011Q4

REPORT INFORMATION
  Report Type: 
  Country: None (occurrence: None)
  Receive Date: 20111212
  Receipt Date: 20111201
  Transmission Date: 20120403
  Serious: Yes (Congenital Anomaly)
  Sender: FDA-Public Use
  Company Number: US-BAYER-2011-118331

PATIENT

DRUGS (1)
  1. YAZ [Suspect]
     Dosage: UNK
     Dates: end: 20090601

REACTIONS (1)
  - SMALL FOR DATES BABY [None]
